FAERS Safety Report 5897459-X (Version None)
Quarter: 2008Q3

REPORT INFORMATION
  Report Type: 
  Country: None (occurrence: None)
  Receive Date: 20080925
  Receipt Date: 20080922
  Transmission Date: 20090109
  Serious: Yes (Hospitalization)
  Sender: FDA-Public Use
  Company Number: NL-WYE-G02206108

PATIENT
  Age: 68 Year
  Sex: Male
  Weight: 81 kg

DRUGS (4)
  1. EFFEXOR XR [Suspect]
     Indication: DEPRESSION
     Dates: start: 20060101
  2. EFFEXOR XR [Suspect]
     Dosage: LOWER DOSE
  3. INEGY [Concomitant]
     Dosage: 10/40 MG 1X PER DAY
     Dates: start: 20060101
  4. ARTHROTEC [Concomitant]
     Dates: start: 20080101

REACTIONS (3)
  - ANKLE FRACTURE [None]
  - FALL [None]
  - ORTHOSTATIC HYPOTENSION [None]
